FAERS Safety Report 7768677-0 (Version None)
Quarter: 2011Q3

REPORT INFORMATION
  Report Type: 
  Country: None (occurrence: None)
  Receive Date: 20110922
  Receipt Date: 20110711
  Transmission Date: 20111222
  Serious: No
  Sender: FDA-Public Use
  Company Number: US-ASTRAZENECA-2011SE41484

PATIENT
  Age: 28 Year
  Sex: Female

DRUGS (3)
  1. PRE NATAL VITAMINS [Concomitant]
  2. SEROQUEL [Suspect]
     Route: 048
     Dates: start: 20110301, end: 20110707
  3. SEROQUEL [Suspect]
     Indication: BIPOLAR II DISORDER
     Dosage: 25 MG TOTAL DAILY DOSE TWO TIMES A DAY
     Route: 048
     Dates: start: 20110301, end: 20110707

REACTIONS (4)
  - MATERNAL EXPOSURE DURING PREGNANCY [None]
  - INFLUENZA LIKE ILLNESS [None]
  - THERAPY CESSATION [None]
  - VOMITING [None]
